FAERS Safety Report 6071496-7 (Version None)
Quarter: 2009Q1

REPORT INFORMATION
  Report Type: 
  Country: None (occurrence: None)
  Receive Date: 20090209
  Receipt Date: 20090209
  Transmission Date: 20090719
  Serious: Yes (Other)
  Sender: FDA-Public Use
  Company Number: None

PATIENT
  Sex: Female
  Weight: 65.7716 kg

DRUGS (1)
  1. CLOBETASOL PROPIONATE [Suspect]
     Indication: ECZEMA
     Dosage: THIN LAYER 2 TIMES DAILY
     Dates: start: 20000101, end: 20070101

REACTIONS (8)
  - ALOPECIA [None]
  - BLINDNESS TRANSIENT [None]
  - GASTROINTESTINAL DISORDER [None]
  - HEADACHE [None]
  - NECK PAIN [None]
  - PAIN [None]
  - PERIVASCULAR DERMATITIS [None]
  - URINARY TRACT INFECTION [None]
